FAERS Safety Report 9032108 (Version 2)
Quarter: 2014Q1

REPORT INFORMATION
  Report Type: Spontaneous
  Country: US (occurrence: US)
  Receive Date: 20130122
  Receipt Date: 20140221
  Transmission Date: 20141002
  Serious: Yes (Hospitalization)
  Sender: FDA-Public Use
  Company Number: US-BAYER-2013-006788

PATIENT
  Age: 44 Year
  Sex: Female
  Weight: 83.45 kg

DRUGS (7)
  1. YAZ [Suspect]
     Indication: MENSTRUAL DISORDER
     Dosage: UNK
     Dates: start: 20071002, end: 20071218
  2. YASMIN [Suspect]
     Indication: MENSTRUATION IRREGULAR
     Dosage: UNK
     Dates: start: 20050914, end: 20051214
  3. ZYRTEC [Concomitant]
  4. BUTALBITAL, ACETAMINOPHEN + CAFFEINE [Concomitant]
  5. TYLENOL [Concomitant]
  6. VICODIN [Concomitant]
  7. ESCITALOPRAM [Concomitant]
     Dosage: UNK
     Dates: start: 200803

REACTIONS (7)
  - Peripheral artery thrombosis [Recovered/Resolved]
  - Subclavian artery thrombosis [Recovered/Resolved]
  - Venous thrombosis [None]
  - Peripheral arterial occlusive disease [Recovered/Resolved]
  - Subclavian artery thrombosis [None]
  - Peripheral embolism [None]
  - Off label use [None]
